FAERS Safety Report 16880279 (Version 1)
Quarter: 2019Q4

REPORT INFORMATION
  Report Type: Report from Study
  Country: JP (occurrence: JP)
  Receive Date: 20191003
  Receipt Date: 20191003
  Transmission Date: 20200122
  Serious: Yes (Death, Life-Threatening, Hospitalization, Other)
  Sender: FDA-Public Use
  Company Number: JP-CELGENEUS-JPN-2015080349

PATIENT
  Age: 67 Year
  Sex: Female

DRUGS (6)
  1. POMALYST [Suspect]
     Active Substance: POMALIDOMIDE
     Indication: PLASMA CELL MYELOMA RECURRENT
     Dosage: 1 MILLIGRAM
     Route: 048
     Dates: start: 20150728, end: 20150729
  2. BAYASPIRIN [Suspect]
     Active Substance: ASPIRIN
     Indication: PRODUCT USED FOR UNKNOWN INDICATION
     Dosage: 100 MILLIGRAM
     Route: 048
     Dates: start: 20150728, end: 20150730
  3. OXYCONTIN [Suspect]
     Active Substance: OXYCODONE HYDROCHLORIDE
     Indication: PRODUCT USED FOR UNKNOWN INDICATION
     Route: 048
  4. POMALYST [Suspect]
     Active Substance: POMALIDOMIDE
     Dosage: 1 MILLIGRAM
     Route: 048
     Dates: start: 20150731, end: 20150731
  5. LENADEX [Suspect]
     Active Substance: DEXAMETHASONE ACETATE
     Indication: PLASMA CELL MYELOMA RECURRENT
     Dosage: 16 MILLIGRAM
     Route: 048
     Dates: start: 20150728, end: 20150728
  6. DEXAMETHASONE. [Concomitant]
     Active Substance: DEXAMETHASONE
     Indication: PLASMA CELL MYELOMA
     Dosage: 18 MILLIGRAM
     Route: 041
     Dates: start: 20150803, end: 20150803

REACTIONS (10)
  - Neutropenia [Not Recovered/Not Resolved]
  - Haemorrhage [Recovering/Resolving]
  - Haemothorax [Recovering/Resolving]
  - C-reactive protein increased [Not Recovered/Not Resolved]
  - Pneumonia aspiration [Recovering/Resolving]
  - Plasma cell myeloma [Fatal]
  - Depressed level of consciousness [Recovering/Resolving]
  - Pruritus [Recovered/Resolved]
  - Pruritus [Not Recovered/Not Resolved]
  - Thrombocytopenia [Recovered/Resolved]

NARRATIVE: CASE EVENT DATE: 20150729
